FAERS Safety Report 4401118-X (Version None)
Quarter: 2004Q3

REPORT INFORMATION
  Report Type: 
  Country: None (occurrence: None)
  Receive Date: 20040907
  Receipt Date: 20031107
  Transmission Date: 20050211
  Serious: No
  Sender: FDA-Public Use
  Company Number: US-BRISTOL-MYERS SQUIBB COMPANY-12430542

PATIENT
  Age: 84 Year
  Sex: Female

DRUGS (14)
  1. COUMADIN [Suspect]
     Indication: ATRIAL FIBRILLATION
     Route: 048
     Dates: start: 19970101
  2. DIGOXIN [Concomitant]
  3. LASIX [Concomitant]
  4. UNIVASC [Concomitant]
  5. TRENTAL [Concomitant]
  6. ISOPTIN SR [Concomitant]
  7. NITROGLYCERIN [Concomitant]
  8. DITROPAN [Concomitant]
  9. TOFRANIL [Concomitant]
  10. BENTYL [Concomitant]
  11. INSULIN [Concomitant]
  12. MOM [Concomitant]
  13. ZANTAC [Concomitant]
  14. EXTRA STRENGTH TYLENOL [Concomitant]

REACTIONS (1)
  - INTERNATIONAL NORMALISED RATIO ABNORMAL [None]
